FAERS Safety Report 8181384-8 (Version None)
Quarter: 2012Q1

REPORT INFORMATION
  Report Type: 
  Country: None (occurrence: None)
  Receive Date: 20120302
  Receipt Date: 20120223
  Transmission Date: 20120608
  Serious: Yes (Hospitalization, Other)
  Sender: FDA-Public Use
  Company Number: US-ELI_LILLY_AND_COMPANY-US201201005288

PATIENT
  Sex: Female
  Weight: 68.027 kg

DRUGS (19)
  1. LOVASTATIN [Concomitant]
     Dosage: 40 MG, QD
     Route: 048
  2. LANTUS [Concomitant]
     Dosage: 27 U, EACH EVENING
     Route: 058
  3. LISINOPRIL [Concomitant]
     Dosage: 20 DF, QD
  4. AMLODIPINE [Concomitant]
     Indication: HYPERTENSION
     Dosage: 10 MG, QD
     Route: 048
     Dates: start: 20100822
  5. INSULIN [Concomitant]
     Indication: BLOOD GLUCOSE
     Dosage: 10 DF, BID
     Route: 058
     Dates: start: 19950101
  6. VITAMIN D [Concomitant]
     Dosage: UNK
  7. ASPIRIN [Concomitant]
     Indication: ANTICOAGULANT THERAPY
     Dosage: 81 MG, QD
     Route: 048
     Dates: start: 20080101, end: 20100825
  8. NOVOLOG [Concomitant]
     Dosage: UNK
     Route: 058
  9. ZOCOR [Concomitant]
     Dosage: 20 DF, QD
  10. ASPIRIN [Concomitant]
     Dosage: 325 MG, QD
     Route: 048
     Dates: start: 20100827
  11. H7T-MC-TADN PH III TAXUS LIBERTE STENTS [Suspect]
     Indication: ACUTE CORONARY SYNDROME
     Dosage: 60 MG, SINGLE
     Dates: start: 20100826, end: 20100826
  12. H7T-MC-TADN PH III TAXUS LIBERTE STENTS [Suspect]
     Dosage: 10 MG, QD
     Dates: start: 20110727, end: 20110831
  13. ASPIRIN [Concomitant]
     Dosage: 81 MG, SINGLE
     Dates: start: 20100826, end: 20100826
  14. ENALAPRIL MALEATE [Concomitant]
     Indication: HYPERTENSION
     Dosage: 10 MG, QD
     Route: 048
     Dates: start: 20080101
  15. METOPROLOL SUCCINATE [Concomitant]
     Dosage: 50 MG, BID
     Route: 048
  16. H7T-MC-TADN PH III TAXUS LIBERTE STENTS [Suspect]
     Dosage: 10 MG, QD
     Dates: start: 20100827, end: 20110727
  17. LANTUS [Concomitant]
     Dosage: 27 U, EACH MORNING
     Route: 058
  18. METFORMIN HCL [Concomitant]
     Indication: BLOOD GLUCOSE
     Dosage: 500 MG, QD
     Route: 048
     Dates: start: 20090101
  19. ATORVASTAN [Concomitant]
     Indication: BLOOD CHOLESTEROL
     Dosage: 80 MG, QD
     Route: 048
     Dates: start: 20090101

REACTIONS (3)
  - CARDIAC FAILURE CONGESTIVE [None]
  - ANGINA PECTORIS [None]
  - GASTRIC ULCER [None]
